FAERS Safety Report 17091784 (Version 1)
Quarter: 2019Q4

REPORT INFORMATION
  Report Type: Report from Study
  Country: US (occurrence: US)
  Receive Date: 20191129
  Receipt Date: 20191129
  Transmission Date: 20200122
  Serious: Yes (Hospitalization)
  Sender: FDA-Public Use
  Company Number: US-TAIHO ONCOLOGY  INC-EU-2019-03939

PATIENT
  Age: 83 Year
  Sex: Male
  Weight: 78.54 kg

DRUGS (8)
  1. LONSURF [Suspect]
     Active Substance: TIPIRACIL HYDROCHLORIDE\TRIFLURIDINE
     Indication: COLON CANCER
     Dosage: CYCLES 1-2.
     Route: 048
     Dates: start: 20190916
  2. LABETALOL [Concomitant]
     Active Substance: LABETALOL\LABETALOL HYDROCHLORIDE
     Dosage: NI
  3. MULTIVITAMIN [Concomitant]
     Active Substance: VITAMINS
     Dosage: NI
  4. PRILOSEC [Concomitant]
     Active Substance: OMEPRAZOLE MAGNESIUM
     Dosage: NI
  5. VITAMIN C [Concomitant]
     Active Substance: ASCORBIC ACID
     Dosage: NI
  6. CITALOPRAM [Concomitant]
     Active Substance: CITALOPRAM HYDROBROMIDE
     Dosage: NI
  7. TYLENOL [Concomitant]
     Active Substance: ACETAMINOPHEN
     Indication: ARTHRITIS
     Dosage: NI
  8. ALLEGRA [Concomitant]
     Active Substance: FEXOFENADINE HYDROCHLORIDE
     Dosage: NI

REACTIONS (7)
  - Face injury [Unknown]
  - Anaemia [Unknown]
  - Loss of consciousness [Unknown]
  - Diarrhoea [Recovered/Resolved]
  - Vomiting [Unknown]
  - White blood cell count decreased [Recovered/Resolved]
  - Red blood cell count decreased [Unknown]

NARRATIVE: CASE EVENT DATE: 2019
